FAERS Safety Report 5788482-4 (Version None)
Quarter: 2008Q2

REPORT INFORMATION
  Report Type: 
  Country: None (occurrence: None)
  Receive Date: 20080625
  Receipt Date: 20080625
  Transmission Date: 20081010
  Serious: No
  Sender: FDA-Public Use
  Company Number: None

PATIENT
  Sex: Female
  Weight: 65.318 kg

DRUGS (1)
  1. DIGITEK TABLET - 125 MG. LIBR. LANNETT CO. [Suspect]
     Dosage: 1 TABLET A DAY

REACTIONS (3)
  - BLOOD PRESSURE ABNORMAL [None]
  - DIZZINESS [None]
  - NAUSEA [None]
